FAERS Safety Report 5475761-3 (Version None)
Quarter: 2007Q4

REPORT INFORMATION
  Report Type: 
  Country: None (occurrence: None)
  Receive Date: 20071003
  Receipt Date: 20071002
  Transmission Date: 20080405
  Serious: Yes (Other)
  Sender: FDA-Public Use
  Company Number: A0685184A

PATIENT
  Sex: Female

DRUGS (4)
  1. ALLI [Suspect]
     Route: 048
     Dates: start: 20070615, end: 20071027
  2. TYSABRI [Concomitant]
  3. STEROIDS [Concomitant]
  4. UNKNOWN [Concomitant]

REACTIONS (5)
  - ANGIOEDEMA [None]
  - DERMATITIS ALLERGIC [None]
  - LIP PAIN [None]
  - LIP SWELLING [None]
  - ORAL MUCOSAL BLISTERING [None]
